FAERS Safety Report 24998054 (Version 1)
Quarter: 2025Q1

REPORT INFORMATION
  Report Type: Spontaneous
  Country: US (occurrence: US)
  Receive Date: 20250222
  Receipt Date: 20250222
  Transmission Date: 20250408
  Serious: No
  Sender: SANOFI AVENTIS
  Company Number: US-SA-2025SA042098

PATIENT
  Sex: Female

DRUGS (21)
  1. DUPIXENT [Suspect]
     Active Substance: DUPILUMAB
     Indication: Dermatitis atopic
     Dosage: 300 MG, QOW
     Route: 058
  2. GLUCOSAMINE [Concomitant]
     Active Substance: GLUCOSAMINE
  3. GENTAMICIN SULFATE [Concomitant]
     Active Substance: GENTAMICIN SULFATE
  4. FUROSEMIDE [Concomitant]
     Active Substance: FUROSEMIDE
  5. ELIQUIS [Concomitant]
     Active Substance: APIXABAN
  6. COLACE [Concomitant]
     Active Substance: DOCUSATE SODIUM
  7. BENADRYL ALLERGY [Concomitant]
     Active Substance: DIPHENHYDRAMINE HYDROCHLORIDE
  8. LEVOTHYROXINE [Concomitant]
     Active Substance: LEVOTHYROXINE
  9. LINZESS [Concomitant]
     Active Substance: LINACLOTIDE
  10. LORATADINE [Concomitant]
     Active Substance: LORATADINE
  11. MAGNESIUM [Concomitant]
     Active Substance: MAGNESIUM
  12. METHOCARBAMOL [Concomitant]
     Active Substance: METHOCARBAMOL
  13. METOPROLOL [Concomitant]
     Active Substance: METOPROLOL
  14. MYRBETRIQ [Concomitant]
     Active Substance: MIRABEGRON
  15. NOVOLOG [Concomitant]
     Active Substance: INSULIN ASPART
  16. OMEPRAZOLE [Concomitant]
     Active Substance: OMEPRAZOLE
  17. MINERALS\VITAMINS [Concomitant]
     Active Substance: MINERALS\VITAMINS
  18. ROSUVASTATIN [Concomitant]
     Active Substance: ROSUVASTATIN
  19. TRESIBA [Concomitant]
     Active Substance: INSULIN DEGLUDEC
  20. TRIAMCINOLONE [Concomitant]
     Active Substance: TRIAMCINOLONE
  21. LOSARTAN POTASSIUM [Concomitant]
     Active Substance: LOSARTAN POTASSIUM

REACTIONS (5)
  - Multiple allergies [Not Recovered/Not Resolved]
  - Pruritus [Not Recovered/Not Resolved]
  - Nasopharyngitis [Not Recovered/Not Resolved]
  - Eye pruritus [Not Recovered/Not Resolved]
  - Sleep disorder due to a general medical condition [Not Recovered/Not Resolved]
